FAERS Safety Report 4949993-4 (Version None)
Quarter: 2006Q1

REPORT INFORMATION
  Report Type: 
  Country: None (occurrence: None)
  Receive Date: 20060316
  Receipt Date: 20060303
  Transmission Date: 20060701
  Serious: Yes (Life-Threatening, Hospitalization)
  Sender: FDA-Public Use
  Company Number: 2004206374FR

PATIENT
  Age: 14 Year
  Sex: Male

DRUGS (3)
  1. GENOTROPIN [Suspect]
     Indication: HYPOPITUITARISM
     Dosage: (11.2 MG, 11.2 MG WEEKLY (7 INJECTIONS)), SUBCUTANEOUS
     Route: 058
     Dates: start: 20001206
  2. LEVOTHYROXINE SODIUM [Concomitant]
  3. BLEOMYCIN [Concomitant]

REACTIONS (5)
  - CRANIOPHARYNGIOMA [None]
  - DIABETES MELLITUS [None]
  - HYPOTHYROIDISM [None]
  - NEOPLASM RECURRENCE [None]
  - TESTICULAR FAILURE [None]
